FAERS Safety Report 8161737-4 (Version None)
Quarter: 2012Q1

REPORT INFORMATION
  Report Type: 
  Country: None (occurrence: None)
  Receive Date: 20120224
  Receipt Date: 20110223
  Transmission Date: 20120608
  Serious: No
  Sender: FDA-Public Use
  Company Number: US-BRISTOL-MYERS SQUIBB COMPANY-15566300

PATIENT
  Age: 69 Year
  Sex: Male
  Weight: 109 kg

DRUGS (7)
  1. METFORMIN HCL [Suspect]
     Dates: start: 20110101
  2. SERAX [Concomitant]
  3. FOLIC ACID [Concomitant]
  4. ACETAMINOPHEN [Concomitant]
  5. ASCORBIC ACID [Concomitant]
  6. PREVACID [Concomitant]
     Dosage: OTC PREVACID
  7. MULTI-VITAMIN [Concomitant]

REACTIONS (4)
  - SOMNOLENCE [None]
  - BLOOD BILIRUBIN INCREASED [None]
  - MEDICATION ERROR [None]
  - DIZZINESS [None]
